FAERS Safety Report 16918664 (Version 2)
Quarter: 2019Q4

REPORT INFORMATION
  Report Type: Spontaneous
  Country: IT (occurrence: IT)
  Receive Date: 20191015
  Receipt Date: 20191101
  Transmission Date: 20200122
  Serious: Yes (Hospitalization, Other)
  Sender: FDA-Public Use
  Company Number: IT-009507513-1910ITA007490

PATIENT
  Age: 82 Year
  Sex: Male

DRUGS (1)
  1. BCG LIVE [Suspect]
     Active Substance: BACILLUS CALMETTE-GUERIN SUBSTRAIN TICE LIVE ANTIGEN
     Indication: BLADDER CANCER
     Dosage: 6 CONSECUTIVE WEEKLY DOSES (UNSPECIFIED)
     Route: 043

REACTIONS (2)
  - Bone marrow granuloma [Unknown]
  - Disseminated Bacillus Calmette-Guerin infection [Unknown]
